FAERS Safety Report 6985853-5 (Version None)
Quarter: 2010Q3

REPORT INFORMATION
  Report Type: 
  Country: None (occurrence: None)
  Receive Date: 20100915
  Receipt Date: 20100902
  Transmission Date: 20110219
  Serious: Yes (Hospitalization, Other)
  Sender: FDA-Public Use
  Company Number: US-ELI_LILLY_AND_COMPANY-US201002001982

PATIENT
  Sex: Female

DRUGS (11)
  1. FORTEO [Suspect]
     Indication: OSTEOPOROSIS
     Dosage: 20 UG, DAILY (1/D)
     Dates: start: 20091201
  2. FORTEO [Suspect]
     Dosage: 20 UG, DAILY (1/D)
  3. CARVEDILOL [Concomitant]
  4. MELOXICAM [Concomitant]
  5. SYNTHROID [Concomitant]
  6. ALTACE [Concomitant]
  7. LOVASTATIN [Concomitant]
  8. PRILOSEC [Concomitant]
  9. AMBIEN [Concomitant]
  10. CALCIUM [Concomitant]
  11. VITAMIN D [Concomitant]

REACTIONS (3)
  - FALL [None]
  - HIP FRACTURE [None]
  - LOWER LIMB FRACTURE [None]
